FAERS Safety Report 6034689-0 (Version None)
Quarter: 2009Q1

REPORT INFORMATION
  Report Type: 
  Country: None (occurrence: None)
  Receive Date: 20090108
  Receipt Date: 20081223
  Transmission Date: 20090719
  Serious: Yes (Death)
  Sender: FDA-Public Use
  Company Number: 000110

PATIENT
  Age: 18 Year
  Sex: Female

DRUGS (7)
  1. ALPRAZOLAM [Suspect]
     Dosage: DF ORAL
     Route: 048
  2. QUETIAPINE FUMARATE [Suspect]
     Dosage: DF
  3. PRAZSOIN HCL [Suspect]
     Dosage: DF
  4. ETHANOL [Suspect]
  5. VALPROIC ACID [Suspect]
  6. LAMOTRIGINE [Suspect]
  7. SERTRALINE [Suspect]

REACTIONS (2)
  - COMPLETED SUICIDE [None]
  - INTENTIONAL DRUG MISUSE [None]
